FAERS Safety Report 4584949-5 (Version None)
Quarter: 2005Q1

REPORT INFORMATION
  Report Type: 
  Country: None (occurrence: None)
  Receive Date: 20050217
  Receipt Date: 20041118
  Transmission Date: 20050727
  Serious: Yes (Hospitalization)
  Sender: FDA-Public Use
  Company Number: US-GLAXOSMITHKLINE-A0534496A

PATIENT
  Sex: Female

DRUGS (5)
  1. WELLBUTRIN [Suspect]
     Indication: DEPRESSION
     Dosage: 300MG PER DAY
     Route: 048
  2. XANAX [Concomitant]
  3. INDERAL [Concomitant]
  4. PRILOSEC [Concomitant]
  5. PERCOCET [Concomitant]

REACTIONS (7)
  - BLOOD PRESSURE INCREASED [None]
  - DRUG INEFFECTIVE [None]
  - INSOMNIA [None]
  - MOOD SWINGS [None]
  - NERVOUSNESS [None]
  - PANIC ATTACK [None]
  - WEIGHT DECREASED [None]
